FAERS Safety Report 6569249-6 (Version None)
Quarter: 2010Q1

REPORT INFORMATION
  Report Type: 
  Country: None (occurrence: None)
  Receive Date: 20100201
  Receipt Date: 20100201
  Transmission Date: 20100710
  Serious: Yes (Other)
  Sender: FDA-Public Use
  Company Number: None

PATIENT
  Sex: Female
  Weight: 54.54 kg

DRUGS (1)
  1. CEFTRIAXONE [Suspect]
     Indication: ENDOCARDITIS
     Dates: start: 20091001, end: 20091201

REACTIONS (2)
  - HAEMODIALYSIS [None]
  - TUBULOINTERSTITIAL NEPHRITIS [None]
